FAERS Safety Report 4558590-4 (Version None)
Quarter: 2005Q1

REPORT INFORMATION
  Report Type: 
  Country: None (occurrence: None)
  Receive Date: 20050121
  Receipt Date: 20041021
  Transmission Date: 20050727
  Serious: Yes (Hospitalization)
  Sender: FDA-Public Use
  Company Number: DE-ROCHE-383894

PATIENT
  Age: 46 Year
  Sex: Male
  Weight: 85.3 kg

DRUGS (45)
  1. MYCOPHENOLATE MOFETIL [Suspect]
     Route: 048
     Dates: start: 20040927, end: 20040927
  2. MYCOPHENOLATE MOFETIL [Suspect]
     Route: 048
     Dates: start: 20040928, end: 20040928
  3. MYCOPHENOLATE MOFETIL [Suspect]
     Route: 048
     Dates: start: 20040929
  4. MYCOPHENOLATE MOFETIL [Suspect]
     Route: 048
     Dates: start: 20041002, end: 20041002
  5. MYCOPHENOLATE MOFETIL [Suspect]
     Route: 048
     Dates: start: 20041003
  6. MYCOPHENOLATE MOFETIL [Suspect]
     Route: 048
     Dates: start: 20041005
  7. MYCOPHENOLATE MOFETIL [Suspect]
     Route: 048
     Dates: start: 20041007, end: 20041008
  8. MYCOPHENOLATE MOFETIL [Suspect]
     Route: 048
     Dates: start: 20041009
  9. DACLIZUMAB [Suspect]
     Route: 042
     Dates: start: 20041011, end: 20041011
  10. DACLIZUMAB [Suspect]
     Route: 042
     Dates: start: 20040927, end: 20040927
  11. DACLIZUMAB [Suspect]
     Route: 042
     Dates: start: 20041025, end: 20041025
  12. DACLIZUMAB [Suspect]
     Route: 042
     Dates: start: 20041108, end: 20041108
  13. DACLIZUMAB [Suspect]
     Route: 042
     Dates: start: 20041123, end: 20041123
  14. SIROLIMUS [Suspect]
     Route: 048
     Dates: start: 20040927, end: 20040927
  15. SIROLIMUS [Suspect]
     Route: 048
     Dates: start: 20040928, end: 20040929
  16. SIROLIMUS [Suspect]
     Route: 048
     Dates: start: 20040930, end: 20041026
  17. SIROLIMUS [Suspect]
     Route: 048
     Dates: start: 20041027, end: 20041112
  18. SIROLIMUS [Suspect]
     Route: 048
     Dates: start: 20041113
  19. PREDNISOLONE [Suspect]
     Route: 042
     Dates: start: 20041008
  20. PREDNISOLONE [Suspect]
     Route: 042
     Dates: start: 20040927, end: 20040927
  21. PREDNISOLONE [Suspect]
     Route: 042
     Dates: start: 20040928
  22. PREDNISOLONE [Suspect]
     Route: 042
     Dates: start: 20040930, end: 20041002
  23. PREDNISOLONE [Suspect]
     Route: 042
     Dates: start: 20041003
  24. PREDNISOLONE [Suspect]
     Route: 042
     Dates: start: 20041006, end: 20041006
  25. PREDNISOLONE [Suspect]
     Route: 042
     Dates: start: 20041007, end: 20041007
  26. PREDNISOLONE [Suspect]
     Route: 042
     Dates: start: 20041015, end: 20041016
  27. PREDNISOLONE [Suspect]
     Route: 042
     Dates: start: 20041017, end: 20041020
  28. PREDNISOLONE [Suspect]
     Route: 042
     Dates: start: 20041021, end: 20041102
  29. PREDNISOLONE [Suspect]
     Route: 042
     Dates: start: 20041103, end: 20041112
  30. PREDNISOLONE [Suspect]
     Route: 042
     Dates: start: 20041113, end: 20041206
  31. PREDNISOLONE [Suspect]
     Route: 042
     Dates: start: 20041207
  32. ACETYLCYSTEINE [Concomitant]
     Dates: start: 20041001, end: 20041016
  33. AMLODIPINE [Concomitant]
     Dates: start: 20040930
  34. AMPHOTERICIN B [Concomitant]
     Dates: start: 20040928
  35. CLONIDIN [Concomitant]
     Dates: start: 20041006
  36. DIHYDRALAZIN [Concomitant]
     Dates: start: 20040930
  37. FUROSEMIDE [Concomitant]
     Dosage: STOPPED ON 02 OCTOBER 2004 AND RESTARTED ON 03 OCTOBER 2004.
     Dates: start: 20040901
  38. LEVOFLOXACIN [Concomitant]
     Dates: start: 20041001, end: 20041016
  39. LORAZEPAM [Concomitant]
     Dates: start: 20040930, end: 20040930
  40. RAMIPRIL [Concomitant]
     Dates: start: 20041003
  41. URAPIDIL [Concomitant]
     Dates: start: 20040928
  42. AMIODARONE HCL [Concomitant]
     Dates: start: 20040930, end: 20041006
  43. ATORVASTATIN [Concomitant]
     Dates: start: 20041113
  44. METOPROLOL [Concomitant]
     Dates: start: 20040928
  45. CEFUROXIM [Concomitant]
     Dosage: STOPPED 2 OCT AND RESTARTED 20 DEC 04.
     Dates: start: 20040928

REACTIONS (2)
  - BLOOD CREATININE INCREASED [None]
  - LYMPHOCELE [None]
